FAERS Safety Report 14780302 (Version 1)
Quarter: 2018Q2

REPORT INFORMATION
  Report Type: Spontaneous
  Country: US (occurrence: US)
  Receive Date: 20180419
  Receipt Date: 20180419
  Transmission Date: 20180711
  Serious: No
  Sender: FDA-Public Use
  Company Number: US-ASTRAZENECA-2018SE51674

PATIENT
  Age: 12574 Day
  Sex: Female
  Weight: 113.4 kg

DRUGS (1)
  1. BYETTA [Suspect]
     Active Substance: EXENATIDE
     Indication: DIABETES MELLITUS
     Route: 058
     Dates: start: 2016

REACTIONS (2)
  - Complication associated with device [Unknown]
  - Underdose [Unknown]

NARRATIVE: CASE EVENT DATE: 20180121
